FAERS Safety Report 5765103-8 (Version None)
Quarter: 2008Q2

REPORT INFORMATION
  Report Type: 
  Country: None (occurrence: None)
  Receive Date: 20080611
  Receipt Date: 20080529
  Transmission Date: 20081010
  Serious: Yes (Other)
  Sender: FDA-Public Use
  Company Number: FR-BRISTOL-MYERS SQUIBB COMPANY-14218804

PATIENT
  Age: 34 Year
  Sex: Female

DRUGS (5)
  1. CYCLOPHOSPHAMIDE [Suspect]
     Indication: BURKITT'S LYMPHOMA
     Route: 065
  2. ONCOVIN [Suspect]
     Indication: BURKITT'S LYMPHOMA
     Route: 065
  3. METHOTREXATE [Suspect]
     Indication: BURKITT'S LYMPHOMA
     Route: 065
  4. ADRIAMYCIN PFS [Suspect]
     Indication: BURKITT'S LYMPHOMA
     Route: 065
  5. PREDNISOLONE [Suspect]
     Indication: BURKITT'S LYMPHOMA
     Route: 065

REACTIONS (5)
  - ABDOMINAL PAIN UPPER [None]
  - ANAEMIA [None]
  - FEBRILE NEUTROPENIA [None]
  - HEADACHE [None]
  - MUCOSAL INFLAMMATION [None]
